FAERS Safety Report 7776889 (Version 3)
Quarter: 2012Q4

REPORT INFORMATION
  Report Type: 
  Country: US (occurrence: US)
  Receive Date: 20110127
  Receipt Date: 20120907
  Transmission Date: 20130627
  Serious: Yes (Hospitalization)
  Sender: FDA-Public Use
  Company Number: US-BAYER-2011-005106

PATIENT
  Age: 39 Year
  Sex: Female
  Weight: 113.38 kg

DRUGS (23)
  1. YASMIN [Suspect]
     Dosage: UNK
     Dates: start: 2001, end: 2007
  2. YAZ [Suspect]
     Dosage: UNK
     Dates: start: 2001, end: 2007
  3. LASIX [Concomitant]
     Dosage: 40 mg, QD
  4. ALDACTONE [SPIRONOLACTONE] [Concomitant]
     Dosage: 250 mg, QD
  5. ZANTAC [Concomitant]
     Dosage: 75 mg, QD
  6. LISINOPRIL [Concomitant]
     Dosage: 2.5 mg, QD
  7. MAGNESIUM OXIDE [Concomitant]
     Dosage: 400 mg, QD
  8. ADVAIR [Concomitant]
     Dosage: UNK
  9. POTASSIUM CHLORIDE [Concomitant]
     Dosage: 400 mg, QD
  10. SINGULAIR [Concomitant]
     Dosage: 10 mg, UNK
  11. FLONASE [Concomitant]
  12. PREDNISONE [Concomitant]
     Dosage: 20 mg, UNK
  13. ALLEGRA [Concomitant]
     Dosage: 60 mg, UNK
     Route: 048
  14. ALPRAZOLAM [Concomitant]
  15. FLOVENT [Concomitant]
     Dosage: 110 mcg aer ( aerosol)
  16. LEVAQUIN [Concomitant]
     Dosage: 500 mg, UNK
  17. METHYLPREDNISOLONE [Concomitant]
     Dosage: 4 mg, pak
  18. COMBIVENT INHALER [Concomitant]
     Dosage: 14.7 mg/ puff 2 puffs,QID, PRN ( as needed)
     Dates: start: 20070710
  19. ASPIRIN [Concomitant]
     Dosage: 81 mg, daily
     Dates: start: 20070710
  20. COREG [Concomitant]
     Dosage: 3.125 mg,if SBP ( systolic blood pressure) [greater than] 100.
     Dates: start: 20070710
  21. PREVACID [Concomitant]
  22. MICRO-K [Concomitant]
  23. PRILOSEC [Concomitant]

REACTIONS (5)
  - Transient ischaemic attack [None]
  - Cerebrovascular accident [None]
  - Pain [None]
  - Anxiety [None]
  - Depression [None]
